FAERS Safety Report 11307266 (Version 1)
Quarter: 2015Q3

REPORT INFORMATION
  Report Type: Spontaneous
  Country: US (occurrence: US)
  Receive Date: 20150723
  Receipt Date: 20150723
  Transmission Date: 20151125
  Serious: Yes (Death)
  Sender: FDA-Public Use
  Company Number: US-BAUSCH-BL-2015-017884

PATIENT
  Sex: Male

DRUGS (2)
  1. XENAZINE [Suspect]
     Active Substance: TETRABENAZINE
     Indication: DYSTONIA
     Route: 048
     Dates: start: 20111222
  2. XENAZINE [Suspect]
     Active Substance: TETRABENAZINE
     Indication: PSYCHOGENIC PAIN DISORDER

REACTIONS (2)
  - Off label use [Unknown]
  - Death [Fatal]
